FAERS Safety Report 4778408-4 (Version None)
Quarter: 2005Q3

REPORT INFORMATION
  Report Type: 
  Country: None (occurrence: None)
  Receive Date: 20050926
  Receipt Date: 20050920
  Transmission Date: 20060218
  Serious: Yes (Hospitalization)
  Sender: FDA-Public Use
  Company Number: IL-JNJFOC-20050904817

PATIENT
  Age: 17 Year
  Sex: Male
  Weight: 63.5 kg

DRUGS (3)
  1. PARACETAMOL [Suspect]
  2. PARACETAMOL [Suspect]
     Indication: SUICIDE ATTEMPT
  3. IBUPROFEN [Suspect]
     Indication: SUICIDE ATTEMPT

REACTIONS (8)
  - ABDOMINAL PAIN [None]
  - DEHYDRATION [None]
  - DRY SKIN [None]
  - FLUID INTAKE REDUCED [None]
  - RENAL FAILURE ACUTE [None]
  - SUICIDE ATTEMPT [None]
  - VOMITING [None]
  - WEIGHT DECREASED [None]
